FAERS Safety Report 8890346 (Version 1)
Quarter: 2012Q4

REPORT INFORMATION
  Report Type: 
  Country: JP (occurrence: JP)
  Receive Date: 20121106
  Receipt Date: 20121106
  Transmission Date: 20130627
  Serious: Yes (Hospitalization)
  Sender: FDA-Public Use
  Company Number: JP-MERCK-1210JPN003090

PATIENT
  Sex: Male

DRUGS (3)
  1. GASTER [Suspect]
     Route: 048
  2. HARNAL [Suspect]
     Route: 048
  3. VESICARE [Suspect]
     Route: 048

REACTIONS (1)
  - Dyskinesia [Unknown]
